FAERS Safety Report 15908564 (Version 3)
Quarter: 2019Q3

REPORT INFORMATION
  Report Type: Spontaneous
  Country: US (occurrence: US)
  Receive Date: 20190204
  Receipt Date: 20190731
  Transmission Date: 20191004
  Serious: Yes (Hospitalization, Other)
  Sender: FDA-Public Use
  Company Number: US-PFIZER INC-2019040265

PATIENT
  Age: 8 Year
  Sex: Female

DRUGS (4)
  1. DILANTIN [Suspect]
     Active Substance: PHENYTOIN
     Dosage: UNK
  2. DILANTIN [Suspect]
     Active Substance: PHENYTOIN
     Dosage: UNK
     Dates: end: 1992
  3. DILANTIN [Suspect]
     Active Substance: PHENYTOIN
     Dosage: 2 DF, DAILY
     Dates: start: 1965, end: 1988
  4. DILANTIN [Suspect]
     Active Substance: PHENYTOIN
     Indication: SEIZURE
     Dosage: 250 MG, 2X/DAY
     Dates: start: 195507, end: 1965

REACTIONS (7)
  - Drug hypersensitivity [Recovered/Resolved]
  - Balance disorder [Unknown]
  - Pyrexia [Recovered/Resolved]
  - Dizziness [Unknown]
  - Fatigue [Recovered/Resolved]
  - Rash [Recovered/Resolved]
  - Weight decreased [Unknown]

NARRATIVE: CASE EVENT DATE: 1955
